FAERS Safety Report 6197286-2 (Version None)
Quarter: 2009Q2

REPORT INFORMATION
  Report Type: 
  Country: None (occurrence: None)
  Receive Date: 20090521
  Receipt Date: 20090519
  Transmission Date: 20091009
  Serious: Yes (Death)
  Sender: FDA-Public Use
  Company Number: US-JNJFOC-20090400454

PATIENT
  Sex: Female

DRUGS (6)
  1. DURAGESIC-100 [Suspect]
     Indication: PAIN
     Route: 062
  2. DURAGESIC-100 [Suspect]
     Indication: RADICULAR PAIN
     Route: 062
  3. LORTAB [Concomitant]
     Indication: PAIN
  4. KLONOPIN [Concomitant]
     Indication: MUSCLE SPASTICITY
  5. KLONOPIN [Concomitant]
     Indication: PAIN
  6. EFFEXOR [Concomitant]
     Indication: DEPRESSION

REACTIONS (3)
  - ANALGESIC DRUG LEVEL INCREASED [None]
  - CHEST INJURY [None]
  - HEAD INJURY [None]
